FAERS Safety Report 14287806 (Version 1)
Quarter: 2017Q4

REPORT INFORMATION
  Report Type: Spontaneous
  Country: US (occurrence: US)
  Receive Date: 20171214
  Receipt Date: 20171214
  Transmission Date: 20180321
  Serious: No
  Sender: FDA-Public Use
  Company Number: US-PERRIGO-17US027124

PATIENT
  Age: 58 Year
  Sex: Male
  Weight: 101.13 kg

DRUGS (6)
  1. TESTOSTERONE. [Suspect]
     Active Substance: TESTOSTERONE
     Dosage: 30 MG, TWICE WEEKLY
     Route: 061
     Dates: start: 201709
  2. DRUGS FOR ACID RELATED DISORDERS [Concomitant]
     Active Substance: UNSPECIFIED INGREDIENT
     Indication: GASTROOESOPHAGEAL REFLUX DISEASE
     Dosage: UNKNOWN, UNKNOWN
     Route: 065
  3. LORAZEPAM. [Concomitant]
     Active Substance: LORAZEPAM
     Indication: ANXIETY
     Dosage: UNKNOWN, UNKNOWN
     Route: 065
  4. VITAMINS NOS [Concomitant]
     Active Substance: VITAMINS
     Indication: SUPPLEMENTATION THERAPY
     Dosage: UNKNOWN, UNKNOWN
     Route: 065
  5. TESTOSTERONE. [Suspect]
     Active Substance: TESTOSTERONE
     Indication: BLOOD TESTOSTERONE DECREASED
     Dosage: 120 MG, TWICE WEEKLY
     Route: 061
     Dates: start: 201705, end: 201709
  6. LEVOTHYROXINE                      /00068002/ [Concomitant]
     Active Substance: LEVOTHYROXINE
     Indication: HYPOTHYROIDISM
     Dosage: UNKNOWN, UNKNOWN
     Route: 065

REACTIONS (8)
  - Pain in extremity [Recovered/Resolved]
  - Mood swings [Recovered/Resolved]
  - Back pain [Recovered/Resolved]
  - Anxiety [Recovered/Resolved]
  - Dehydration [Recovered/Resolved]
  - Inappropriate schedule of drug administration [Not Recovered/Not Resolved]
  - Dihydrotestosterone increased [Recovered/Resolved]
  - Erection increased [Recovered/Resolved]

NARRATIVE: CASE EVENT DATE: 201705
